FAERS Safety Report 6347394-8 (Version None)
Quarter: 2009Q3

REPORT INFORMATION
  Report Type: 
  Country: None (occurrence: None)
  Receive Date: 20090910
  Receipt Date: 20090902
  Transmission Date: 20100115
  Serious: Yes (Death, Hospitalization, Other)
  Sender: FDA-Public Use
  Company Number: GB-BAYER-200931047GPV

PATIENT
  Age: 61 Year
  Sex: Female

DRUGS (7)
  1. ASPIRIN [Suspect]
     Indication: DRUG USE FOR UNKNOWN INDICATION
     Route: 065
     Dates: start: 20090410
  2. ANGIOMAX [Suspect]
     Indication: ANGINA PECTORIS
     Route: 042
     Dates: start: 20090410, end: 20090410
  3. CLOPIDOGREL [Suspect]
     Indication: DRUG USE FOR UNKNOWN INDICATION
     Route: 065
     Dates: start: 20090409, end: 20090409
  4. CLOPIDOGREL [Suspect]
     Route: 065
     Dates: start: 20090410, end: 20090410
  5. HEPARIN [Suspect]
     Indication: DRUG USE FOR UNKNOWN INDICATION
     Route: 065
     Dates: start: 20090410
  6. REOPRO [Suspect]
     Indication: DRUG USE FOR UNKNOWN INDICATION
     Route: 065
     Dates: start: 20090410
  7. BETA BLOCKING AGENTS [Concomitant]

REACTIONS (3)
  - CORONARY ARTERY THROMBOSIS [None]
  - PUNCTURE SITE HAEMORRHAGE [None]
  - SUBDURAL HAEMORRHAGE [None]
